FAERS Safety Report 5909672-3 (Version None)
Quarter: 2008Q4

REPORT INFORMATION
  Report Type: 
  Country: None (occurrence: None)
  Receive Date: 20081007
  Receipt Date: 20080929
  Transmission Date: 20090506
  Serious: Yes (Other)
  Sender: FDA-Public Use
  Company Number: PHHY2008DE10806

PATIENT
  Sex: Male

DRUGS (4)
  1. ZOMETA [Suspect]
     Indication: PROSTATE CANCER METASTATIC
     Dosage: EVERY 4 WEEKS
     Route: 042
     Dates: start: 20070710
  2. CASODEX [Concomitant]
     Indication: PROSTATE CANCER
     Dosage: 50 MG/DAY
     Route: 048
     Dates: start: 20070701
  3. TRENANTONE [Concomitant]
     Indication: PROSTATE CANCER
     Dosage: 3 MONTH DEPOT
     Dates: start: 20050401
  4. PREDNISONE TAB [Concomitant]
     Indication: PROSTATE CANCER
     Dosage: 5 MG, UNK
     Route: 048
     Dates: start: 20080501

REACTIONS (5)
  - ABSCESS JAW [None]
  - FISTULA [None]
  - IMPAIRED HEALING [None]
  - OSTEONECROSIS [None]
  - TOOTH EXTRACTION [None]
